FAERS Safety Report 4988283-0 (Version None)
Quarter: 2006Q2

REPORT INFORMATION
  Report Type: 
  Country: None (occurrence: None)
  Receive Date: 20060425
  Receipt Date: 20060412
  Transmission Date: 20061013
  Serious: Yes (Hospitalization)
  Sender: FDA-Public Use
  Company Number: 2006036067

PATIENT
  Age: 77 Year
  Sex: Male

DRUGS (18)
  1. VFEND [Suspect]
     Indication: MYCOTIC CORNEAL ULCER
     Dosage: SEE IMAGE
     Route: 042
     Dates: start: 20060210, end: 20060210
  2. VFEND [Suspect]
     Indication: MYCOTIC CORNEAL ULCER
     Dosage: SEE IMAGE
     Route: 042
     Dates: start: 20060211, end: 20060224
  3. VFEND [Suspect]
     Indication: MYCOTIC CORNEAL ULCER
     Dosage: SEE IMAGE
     Route: 042
     Dates: start: 20060217
  4. VFEND [Suspect]
     Indication: MYCOTIC CORNEAL ULCER
     Dosage: ORAL
     Route: 048
     Dates: start: 20060217, end: 20060224
  5. WARFARIN SODIUM [Suspect]
     Indication: PROPHYLAXIS
     Dosage: 1 MG (1 MG, 1 IN 1 D), ORAL
     Route: 048
     Dates: start: 20020401, end: 20060224
  6. WARFARIN SODIUM [Suspect]
     Indication: PROPHYLAXIS
     Dosage: 1 MG (1 MG, 1 IN 1 D), ORAL
     Route: 048
     Dates: start: 20060320
  7. PRODIF (FOSFLUCONAZOLE) [Concomitant]
  8. BLOPRESS (CANDESARTAN CILEXETIL) [Concomitant]
  9. MAGNESIUM OXIDE (MAGNESIUM OXIDE) [Concomitant]
  10. HERBAL PREPARATION (HERBAL PREPARATION) [Concomitant]
  11. ALOSENN (ACHILLEA, RUBIA ROOT TINCTURE, SENNA FRUIT, SENNA LEAF, TARAX [Concomitant]
  12. AVISHOT (NAFTOPIDIL) [Concomitant]
  13. LEVOFLOXACIN [Concomitant]
  14. PANIMYCIN (DIBEKACIN SULFATE) [Concomitant]
  15. ATROPINE [Concomitant]
  16. DIFLUCAN [Concomitant]
  17. VANCOMYCIN HYDROCHLORIDE [Concomitant]
  18. ALL OTHER THERAPEUTIC PRODUCTS (ALL OTHER THERAPEUTIC PRODUCTS) [Concomitant]

REACTIONS (14)
  - COLON CANCER [None]
  - CORNEAL PERFORATION [None]
  - DRUG EFFECT DECREASED [None]
  - DRUG INTERACTION [None]
  - EPISTAXIS [None]
  - EYE HAEMORRHAGE [None]
  - HAEMORRHAGIC DIATHESIS [None]
  - INTERNATIONAL NORMALISED RATIO INCREASED [None]
  - KERATITIS FUNGAL [None]
  - METASTASES TO LIVER [None]
  - MYCOTIC CORNEAL ULCER [None]
  - PROTHROMBIN TIME PROLONGED [None]
  - STAPHYLOCOCCAL INFECTION [None]
  - ULCERATIVE KERATITIS [None]
